FAERS Safety Report 16582131 (Version 2)
Quarter: 2019Q3

REPORT INFORMATION
  Report Type: Spontaneous
  Country: SE (occurrence: SE)
  Receive Date: 20190717
  Receipt Date: 20190718
  Transmission Date: 20191004
  Serious: Yes (Other)
  Sender: FDA-Public Use
  Company Number: PHHY2019SE163252

PATIENT
  Age: 31 Year
  Sex: Female

DRUGS (1)
  1. VOLTAREN 23.2 MG/G GEL (DICLOFENAC DIETHYLAMINE) [Suspect]
     Active Substance: DICLOFENAC DIETHYLAMINE
     Indication: MYALGIA
     Route: 065
     Dates: start: 2018, end: 2018

REACTIONS (5)
  - Cough [Not Recovered/Not Resolved]
  - Exposure to contaminated air [Not Recovered/Not Resolved]
  - Dyspnoea [Recovered/Resolved]
  - Heart rate increased [Recovered/Resolved]
  - Vomiting [Not Recovered/Not Resolved]

NARRATIVE: CASE EVENT DATE: 2018
